FAERS Safety Report 5349961-7 (Version None)
Quarter: 2007Q2

REPORT INFORMATION
  Report Type: 
  Country: None (occurrence: None)
  Receive Date: 20070607
  Receipt Date: 20070524
  Transmission Date: 20071010
  Serious: Yes (Hospitalization, Other)
  Sender: FDA-Public Use
  Company Number: US-SHR-US-2007-014922

PATIENT
  Age: 53 Year
  Sex: Female

DRUGS (7)
  1. BETASERON [Suspect]
     Indication: MULTIPLE SCLEROSIS
     Dosage: 2 MIU, EVERY 2D
     Route: 058
     Dates: start: 20070423, end: 20070101
  2. BETASERON [Suspect]
     Dosage: 6 MIU, EVERY 2D
     Route: 058
     Dates: start: 20070101
  3. CLONAZEPAM [Suspect]
     Dates: end: 20070401
  4. ANXIOLYTICS [Concomitant]
     Indication: ANXIETY
     Dosage: UNK TAB(S), UNK
     Route: 048
  5. THYROID PREPARATIONS [Concomitant]
     Indication: THYROID DISORDER
  6. CARDIOVASCULAR SYSTEM DRUGS [Concomitant]
  7. ANTIDEPRESSANTS [Concomitant]
     Indication: DEPRESSION

REACTIONS (13)
  - ABNORMAL BEHAVIOUR [None]
  - AGGRESSION [None]
  - ANXIETY [None]
  - CLAUSTROPHOBIA [None]
  - CONVULSION [None]
  - DENTAL CARIES [None]
  - DENTAL NECROSIS [None]
  - DISORIENTATION [None]
  - DIZZINESS [None]
  - DYSARTHRIA [None]
  - HYPERSOMNIA [None]
  - HYPOAESTHESIA [None]
  - PRESCRIBED OVERDOSE [None]
